FAERS Safety Report 5639067-1 (Version None)
Quarter: 2008Q1

REPORT INFORMATION
  Report Type: 
  Country: None (occurrence: None)
  Receive Date: 20080226
  Receipt Date: 20070608
  Transmission Date: 20080703
  Serious: No
  Sender: FDA-Public Use
  Company Number: US-BAUSCH-2007BL001897

PATIENT
  Age: 66 Year
  Sex: Male

DRUGS (4)
  1. FLUNISOLIDE NASAL SOLUTION USP 0.025% [Suspect]
     Indication: RHINITIS
     Route: 045
     Dates: start: 20061201
  2. HYDROCHLOROTHIAZIDE [Concomitant]
     Indication: HYPERTENSION
     Route: 048
  3. ENALAPRIL MALEATE [Concomitant]
     Indication: HYPERTENSION
     Route: 048
  4. DOXAZOSIN MESYLATE [Concomitant]
     Indication: HYPERTENSION
     Route: 048

REACTIONS (1)
  - FALSE POSITIVE LABORATORY RESULT [None]
